FAERS Safety Report 15280577 (Version 1)
Quarter: 2018Q3

REPORT INFORMATION
  Report Type: Spontaneous
  Country: US (occurrence: US)
  Receive Date: 20180731
  Receipt Date: 20180731
  Transmission Date: 20181010
  Serious: No
  Sender: FDA-Public Use
  Company Number: None

PATIENT
  Age: 66 Year
  Sex: Male
  Weight: 88.65 kg

DRUGS (3)
  1. SUBOXONE [Suspect]
     Active Substance: BUPRENORPHINE HYDROCHLORIDE\NALOXONE HYDROCHLORIDE
     Indication: DRUG DEPENDENCE
     Dosage: ?          QUANTITY:1 STRIP;?
     Route: 060
     Dates: start: 20180601, end: 20180730
  2. TYLENOL [Concomitant]
     Active Substance: ACETAMINOPHEN
  3. CENTRUM MULTI VITAMIN [Concomitant]

REACTIONS (2)
  - Oral pain [None]
  - Burn oral cavity [None]

NARRATIVE: CASE EVENT DATE: 20180601
